FAERS Safety Report 11947095 (Version 1)
Quarter: 2016Q1

REPORT INFORMATION
  Report Type: Spontaneous
  Country: US (occurrence: US)
  Receive Date: 20160125
  Receipt Date: 20160125
  Transmission Date: 20160526
  Serious: No
  Sender: FDA-Public Use
  Company Number: US-AMGEN-USASP2016006611

PATIENT
  Age: 60 Year
  Sex: Female

DRUGS (12)
  1. CEPHALEXIN                         /00145501/ [Concomitant]
     Active Substance: CEPHALEXIN
  2. TESTOSTERONE. [Concomitant]
     Active Substance: TESTOSTERONE
  3. FOLIC ACID. [Concomitant]
     Active Substance: FOLIC ACID
  4. ENBREL [Suspect]
     Active Substance: ETANERCEPT
     Indication: RHEUMATOID ARTHRITIS
     Dosage: 50 MG, QWK
     Route: 058
  5. ALENDRONATE SODIUM. [Concomitant]
     Active Substance: ALENDRONATE SODIUM
  6. HYDROXYCHLOROQUINE SULFATE. [Concomitant]
     Active Substance: HYDROXYCHLOROQUINE SULFATE
  7. VITAMIN D3 [Concomitant]
     Active Substance: CHOLECALCIFEROL
  8. TEMAZEPAM. [Concomitant]
     Active Substance: TEMAZEPAM
  9. SULFASALAZINE. [Concomitant]
     Active Substance: SULFASALAZINE
  10. ESTRADIOL. [Concomitant]
     Active Substance: ESTRADIOL
     Dosage: UNK
  11. OMEPRAZOLE. [Concomitant]
     Active Substance: OMEPRAZOLE
  12. MISOPROSTOL. [Concomitant]
     Active Substance: MISOPROSTOL

REACTIONS (1)
  - Drug ineffective [Unknown]
